FAERS Safety Report 9251958 (Version 1)
Quarter: 2013Q2

REPORT INFORMATION
  Report Type: Spontaneous
  Country: US (occurrence: US)
  Receive Date: 20130424
  Receipt Date: 20130424
  Transmission Date: 20140414
  Serious: Yes (Hospitalization)
  Sender: FDA-Public Use
  Company Number: US-PFIZER INC-2013125800

PATIENT
  Sex: Male

DRUGS (3)
  1. NORVASC [Suspect]
     Dosage: UNK
  2. NEURONTIN [Suspect]
     Dosage: UNK
  3. XALATAN [Suspect]
     Dosage: UNK

REACTIONS (2)
  - Rib fracture [Unknown]
  - Chronic obstructive pulmonary disease [Unknown]
